FAERS Safety Report 12252847 (Version 3)
Quarter: 2019Q4

REPORT INFORMATION
  Report Type: Report from Study
  Country: US (occurrence: US)
  Receive Date: 20160411
  Receipt Date: 20191121
  Transmission Date: 20200122
  Serious: Yes (Other)
  Sender: FDA-Public Use
  Company Number: US-ROCHE-1739702

PATIENT

DRUGS (2)
  1. BEVACIZUMAB. [Suspect]
     Active Substance: BEVACIZUMAB
     Indication: GLIOBLASTOMA
     Route: 065
  2. TEMOZOLOMIDE. [Suspect]
     Active Substance: TEMOZOLOMIDE
     Indication: GLIOBLASTOMA
     Route: 065

REACTIONS (9)
  - Proteinuria [Recovered/Resolved]
  - Squamous cell carcinoma [Unknown]
  - Fracture [Unknown]
  - Cerebrovascular accident [Unknown]
  - Platelet count decreased [Unknown]
  - Chronic kidney disease [Unknown]
  - Urticaria [Unknown]
  - Hypertension [Recovered/Resolved]
  - Blood creatinine increased [Unknown]
